FAERS Safety Report 5081932-0 (Version None)
Quarter: 2006Q3

REPORT INFORMATION
  Report Type: 
  Country: None (occurrence: None)
  Receive Date: 20060811
  Receipt Date: 20060804
  Transmission Date: 20061208
  Serious: Yes (Hospitalization)
  Sender: FDA-Public Use
  Company Number: 2006RL000206

PATIENT
  Age: 81 Year
  Sex: Male

DRUGS (6)
  1. ISRADIPINE [Suspect]
     Indication: MYOCARDIAL ISCHAEMIA
     Dosage: 2.5 MG;QD;PO
     Route: 048
  2. ATENOLOL [Suspect]
     Indication: MYOCARDIAL ISCHAEMIA
     Dosage: 25 MG;QD;PO
     Route: 048
     Dates: start: 19890101
  3. PLAVIX [Suspect]
     Indication: MYOCARDIAL ISCHAEMIA
     Dosage: 75 MG;QD;PO
     Route: 048
     Dates: start: 20050101
  4. ALLOPURINOL [Suspect]
     Indication: DRUG USE FOR UNKNOWN INDICATION
     Dosage: 200 MG;QD;PO
     Route: 048
  5. SIMVASTATIN [Suspect]
     Indication: DRUG USE FOR UNKNOWN INDICATION
     Dosage: 40 MG;QD;PO
     Dates: start: 19970101, end: 20060426
  6. ASPIRIN [Suspect]
     Indication: MYOCARDIAL ISCHAEMIA
     Dosage: 160 MG;QD;PO
     Route: 048

REACTIONS (12)
  - ASTHENIA [None]
  - BRONCHIAL DISORDER [None]
  - COUGH [None]
  - EOSINOPHILIA [None]
  - HYPOCAPNIA [None]
  - HYPOXIA [None]
  - INFLAMMATION [None]
  - INTERSTITIAL LUNG DISEASE [None]
  - METAPLASIA [None]
  - PULMONARY FIBROSIS [None]
  - PYREXIA [None]
  - WEIGHT DECREASED [None]
